FAERS Safety Report 23438028 (Version 2)
Quarter: 2024Q1

REPORT INFORMATION
  Report Type: Report from Study
  Country: ZA (occurrence: ZA)
  Receive Date: 20240124
  Receipt Date: 20240208
  Transmission Date: 20240410
  Serious: Yes (Death)
  Sender: FDA-Public Use
  Company Number: ZA-BAYER-2024A013433

PATIENT
  Sex: Female

DRUGS (2)
  1. EYLEA [Suspect]
     Active Substance: AFLIBERCEPT
     Indication: Neovascular age-related macular degeneration
     Dosage: 2X VIAL ( BILATERAL EYES), SOLUTION FOR INJECTION, 40 MG/ML
     Dates: start: 20220922, end: 20220922
  2. EYLEA [Suspect]
     Active Substance: AFLIBERCEPT
     Dosage: 9 DF, BOTH EYES OVER A 2 YEAR PERIOD: SOLUTION FOR INJECTION: 40 M/ML
     Dates: start: 20231220

REACTIONS (4)
  - Syncope [Fatal]
  - General physical health deterioration [Fatal]
  - Diabetes mellitus inadequate control [Fatal]
  - Obesity [Fatal]

NARRATIVE: CASE EVENT DATE: 20240123
